FAERS Safety Report 8073692-6 (Version None)
Quarter: 2012Q1

REPORT INFORMATION
  Report Type: 
  Country: None (occurrence: None)
  Receive Date: 20120126
  Receipt Date: 20120119
  Transmission Date: 20120608
  Serious: Yes (Hospitalization)
  Sender: FDA-Public Use
  Company Number: PHHY2012IT004818

PATIENT
  Sex: Female

DRUGS (3)
  1. SIMVASTATIN [Suspect]
  2. GLIMEPIRIDE [Suspect]
  3. REPAGLINIDE [Suspect]

REACTIONS (6)
  - PSYCHOMOTOR HYPERACTIVITY [None]
  - CONFUSIONAL STATE [None]
  - DISTURBANCE IN ATTENTION [None]
  - HYPOGLYCAEMIA [None]
  - NEUROTOXICITY [None]
  - RHABDOMYOLYSIS [None]
